FAERS Safety Report 6186843-5 (Version None)
Quarter: 2009Q2

REPORT INFORMATION
  Report Type: 
  Country: None (occurrence: None)
  Receive Date: 20090508
  Receipt Date: 20090508
  Transmission Date: 20091009
  Serious: Yes (Hospitalization)
  Sender: FDA-Public Use
  Company Number: None

PATIENT
  Age: 67 Year
  Sex: Male
  Weight: 83.46 kg

DRUGS (3)
  1. REMICADE [Suspect]
     Indication: ANKYLOSING SPONDYLITIS
     Dosage: 400 MG ONCE IV
     Route: 042
     Dates: start: 20071029, end: 20071029
  2. REMICADE [Suspect]
     Indication: ARTHRITIS
     Dosage: 400 MG ONCE IV
     Route: 042
     Dates: start: 20071029, end: 20071029
  3. REMICADE [Suspect]
     Indication: CROHN'S DISEASE
     Dosage: 400 MG ONCE IV
     Route: 042
     Dates: start: 20071029, end: 20071029

REACTIONS (6)
  - ANGINA PECTORIS [None]
  - CHEST PAIN [None]
  - CHILLS [None]
  - DIZZINESS [None]
  - HEADACHE [None]
  - HYPOTENSION [None]
